FAERS Safety Report 7893283-7 (Version None)
Quarter: 2011Q4

REPORT INFORMATION
  Report Type: 
  Country: None (occurrence: None)
  Receive Date: 20111104
  Receipt Date: 20111027
  Transmission Date: 20120403
  Serious: Yes (Other)
  Sender: FDA-Public Use
  Company Number: US-JNJFOC-20110410636

PATIENT
  Sex: Male
  Weight: 90.72 kg

DRUGS (13)
  1. CYMBALTA [Concomitant]
     Indication: PAIN IN EXTREMITY
     Route: 048
  2. RAZADYNE ER [Concomitant]
     Indication: HEAD INJURY
     Route: 048
     Dates: start: 20101101, end: 20111024
  3. CELEBREX [Concomitant]
     Indication: ARTHRALGIA
     Route: 048
  4. DURAGESIC-100 [Suspect]
     Indication: PAIN
     Dosage: FOUR AND A HALF YEARS AGO
     Route: 062
  5. DURAGESIC-100 [Suspect]
     Route: 062
     Dates: start: 20020101
  6. LUNESTA [Concomitant]
     Indication: SLEEP DISORDER
     Route: 048
  7. SENOKOT [Concomitant]
     Dosage: BEDTIME
     Route: 048
  8. FENTANYL CITRATE [Suspect]
     Indication: PRODUCT USED FOR UNKNOWN INDICATION
     Route: 062
     Dates: start: 20100101
  9. ADDERALL 5 [Concomitant]
     Indication: CRANIOCEREBRAL INJURY
     Route: 048
  10. DURAGESIC-100 [Suspect]
     Route: 062
     Dates: start: 20050101
  11. VICODIN [Concomitant]
     Indication: BREAKTHROUGH PAIN
     Route: 048
  12. VENTOLIN [Concomitant]
     Indication: ASTHMA
     Dosage: 2 PUFFS AS NEEDED
     Route: 055
  13. ZOLOFT [Concomitant]
     Route: 048

REACTIONS (14)
  - CEREBRAL ATROPHY [None]
  - COMA [None]
  - ROTATOR CUFF SYNDROME [None]
  - DEPRESSION [None]
  - ATTENTION DEFICIT/HYPERACTIVITY DISORDER [None]
  - PRODUCT QUALITY ISSUE [None]
  - FEELING ABNORMAL [None]
  - CRANIOCEREBRAL INJURY [None]
  - ROAD TRAFFIC ACCIDENT [None]
  - ACTIVITIES OF DAILY LIVING IMPAIRED [None]
  - HYPERHIDROSIS [None]
  - SPINAL COLUMN INJURY [None]
  - PAIN [None]
  - AMNESIA [None]
